FAERS Safety Report 9529905 (Version 2)
Quarter: 2013Q3

REPORT INFORMATION
  Report Type: Report from Study
  Country: US (occurrence: US)
  Receive Date: 20130917
  Receipt Date: 20130917
  Transmission Date: 20140515
  Serious: Yes (Hospitalization)
  Sender: FDA-Public Use
  Company Number: US-ACTELION-A-NJ2012-74141

PATIENT
  Age: 74 Year
  Sex: Female

DRUGS (16)
  1. VENTAVIS [Suspect]
     Indication: PULMONARY HYPERTENSION
     Dosage: UNK
     Route: 055
  2. LETAIRIS [Suspect]
     Dosage: 5 MG, UNK
     Dates: start: 20111020
  3. REVATIO [Concomitant]
  4. ASPIRIN [Concomitant]
  5. MAGNESIUM [Concomitant]
  6. NASONEX [Concomitant]
  7. ATENOLOL [Concomitant]
  8. SIMVASTATIN [Concomitant]
  9. PREVACID [Concomitant]
  10. CELEXA [Concomitant]
  11. KLONOPIN [Concomitant]
  12. EVISTA [Concomitant]
  13. PREDNISONE [Concomitant]
  14. SYNTHROID [Concomitant]
  15. OS-CAL D [Concomitant]
  16. NORCO [Concomitant]

REACTIONS (3)
  - Confusional state [Unknown]
  - Dehydration [Unknown]
  - Hypokalaemia [Unknown]
